FAERS Safety Report 13834545 (Version 3)
Quarter: 2018Q1

REPORT INFORMATION
  Report Type: Spontaneous
  Country: JP (occurrence: JP)
  Receive Date: 20170804
  Receipt Date: 20180131
  Transmission Date: 20180508
  Serious: Yes (Hospitalization, Other)
  Sender: FDA-Public Use
  Company Number: JP-TAKEDA-2017TJP016425

PATIENT
  Age: 76 Year
  Sex: Female
  Weight: 62 kg

DRUGS (3)
  1. PITAVASTATIN. [Concomitant]
     Active Substance: PITAVASTATIN CALCIUM
     Indication: DYSLIPIDAEMIA
     Dosage: 1 MG, QD
     Route: 048
     Dates: start: 2001
  2. AMLODIPINE                         /00972402/ [Concomitant]
     Active Substance: AMLODIPINE BESYLATE
     Indication: HYPERTENSION
     Dosage: 2.5 MG, QD
     Dates: start: 2001
  3. TAKEPRON CAPSULES 15 [Suspect]
     Active Substance: LANSOPRAZOLE
     Indication: GASTROOESOPHAGEAL REFLUX DISEASE
     Dosage: 15 MG, QD
     Route: 065
     Dates: start: 2001

REACTIONS (3)
  - Condition aggravated [Unknown]
  - Gastric polyps [Unknown]
  - Gastric dysplasia [Unknown]

NARRATIVE: CASE EVENT DATE: 201508
